FAERS Safety Report 8849167 (Version 1)
Quarter: 2012Q4

REPORT INFORMATION
  Report Type: Spontaneous
  Country: US (occurrence: None)
  Receive Date: 20121017
  Receipt Date: 20121017
  Transmission Date: 20130627
  Serious: Yes (Hospitalization)
  Sender: FDA-Public Use
  Company Number: None

PATIENT
  Sex: Female
  Weight: 48 kg

DRUGS (1)
  1. INTUNIV [Suspect]
     Indication: ADHD
     Dosage: 3 mg once daily po
     Route: 048
     Dates: start: 20120305, end: 20121007

REACTIONS (2)
  - Syncope [None]
  - Sinus bradycardia [None]
